FAERS Safety Report 6887480-7 (Version None)
Quarter: 2010Q3

REPORT INFORMATION
  Report Type: 
  Country: None (occurrence: None)
  Receive Date: 20100708
  Receipt Date: 20100421
  Transmission Date: 20110219
  Serious: Yes (Hospitalization, Other)
  Sender: FDA-Public Use
  Company Number: 2009314612

PATIENT
  Age: 43 Year
  Sex: Male
  Weight: 112 kg

DRUGS (1)
  1. CHANTIX [Suspect]
     Indication: SMOKING CESSATION THERAPY
     Dosage: 0.5 MG-1 MG STARTER PACK, ORAL
     Route: 048
     Dates: start: 20090209

REACTIONS (3)
  - AGITATION [None]
  - DEPRESSION [None]
  - SUICIDE ATTEMPT [None]
